FAERS Safety Report 14224464 (Version 6)
Quarter: 2017Q4

REPORT INFORMATION
  Report Type: Report from Study
  Country: US (occurrence: US)
  Receive Date: 20171127
  Receipt Date: 20171215
  Transmission Date: 20180321
  Serious: No
  Sender: FDA-Public Use
  Company Number: PHEH2017US037647

PATIENT
  Sex: Female

DRUGS (1)
  1. BETOPTIC S [Suspect]
     Active Substance: BETAXOLOL HYDROCHLORIDE
     Indication: CATARACT
     Dosage: 1 GTT, TID (BOTH EYES)
     Route: 065

REACTIONS (4)
  - Incorrect dose administered [Unknown]
  - Product dropper issue [Unknown]
  - Cataract [Unknown]
  - Product use complaint [Unknown]
